FAERS Safety Report 8790729 (Version 2)
Quarter: 2012Q4

REPORT INFORMATION
  Report Type: Spontaneous
  Country: US (occurrence: None)
  Receive Date: 20120906
  Receipt Date: 20120914
  Transmission Date: 20130627
  Serious: Yes (Other)
  Sender: FDA-Public Use
  Company Number: 2012P1055102

PATIENT
  Age: 80 Year
  Sex: Female
  Weight: 58.97 kg

DRUGS (8)
  1. WARFARIN SODIUM [Suspect]
     Indication: ATRIAL FIBRILLATION
     Dosage: 2 mg; T, F; PO
     Dates: start: 200912
  2. WARFARIN SODIUM [Suspect]
     Indication: ATRIAL FIBRILLATION
     Dosage: 1 mg; M, W, Th, Sa, Sun
  3. WARFARIN SODIUM [Suspect]
     Indication: ATRIAL FIBRILLATION
     Dosage: 2.5 mg; M, W, Th, Sa, Sun; PO
     Dates: start: 200912
  4. PREMARIN [Concomitant]
  5. AZOR [Concomitant]
  6. ZIAC [Concomitant]
  7. OMEPRAZOLE [Concomitant]
  8. FLUTICASONE PROPIONATE [Concomitant]

REACTIONS (4)
  - Alopecia [None]
  - Spinal column stenosis [None]
  - Chronic obstructive pulmonary disease [None]
  - Hypoaesthesia [None]
